FAERS Safety Report 21450864 (Version 1)
Quarter: 2022Q4

REPORT INFORMATION
  Report Type: Spontaneous
  Country: US (occurrence: None)
  Receive Date: 20221012
  Receipt Date: 20221012
  Transmission Date: 20230113
  Serious: Yes (unspecified)
  Sender: FDA-Public Use
  Company Number: None

PATIENT
  Age: 81 Year
  Sex: Female
  Weight: 62.6 kg

DRUGS (14)
  1. METOPROLOL SUCCINATE [Suspect]
     Active Substance: METOPROLOL SUCCINATE
     Indication: Supraventricular tachycardia
     Dosage: DOSE: 1 TABLET DAILY
     Dates: start: 20220609, end: 20220915
  2. ASPIRIN [Concomitant]
     Active Substance: ASPIRIN
  3. OMEGA-3 ACIDS [Concomitant]
     Active Substance: OMEGA-3 FATTY ACIDS
  4. DIETARY SUPPLEMENT [Concomitant]
     Active Substance: DIETARY SUPPLEMENT
  5. COENZYME Q10 [Concomitant]
     Active Substance: DIETARY SUPPLEMENT\UBIDECARENONE
  6. BRAIN FOCUS [Concomitant]
  7. CURCUMIN ULTRA [Concomitant]
  8. COR-IMMUNE DEFENSE [Concomitant]
  9. MAGNESIUM [Concomitant]
     Active Substance: MAGNESIUM
  10. WOMEN^S ULRA MEGA MULTIVITS [Concomitant]
  11. MULTI COLLAGEN PROTEIN [Concomitant]
  12. METAMUCIL [Concomitant]
     Active Substance: PLANTAGO SEED
  13. ALIGN DUAL BIOTIC GUMMIES [Concomitant]
  14. VITAMIN D3 [Concomitant]
     Active Substance: CHOLECALCIFEROL

REACTIONS (1)
  - Alopecia [None]
